FAERS Safety Report 15618529 (Version 2)
Quarter: 2018Q4

REPORT INFORMATION
  Report Type: Spontaneous
  Country: DE (occurrence: DE)
  Receive Date: 20181114
  Receipt Date: 20181122
  Transmission Date: 20190205
  Serious: Yes (Life-Threatening)
  Sender: FDA-Public Use
  Company Number: DE-ITALFARMACO SPA-2058861

PATIENT
  Age: 61 Year
  Sex: Male

DRUGS (4)
  1. FOLSAURE [Concomitant]
     Active Substance: FOLIC ACID
     Route: 048
  2. RILUZOLE. [Suspect]
     Active Substance: RILUZOLE
     Indication: AMYOTROPHIC LATERAL SCLEROSIS
     Route: 048
  3. OMEPRAZOLE. [Concomitant]
     Active Substance: OMEPRAZOLE
     Route: 048
  4. UNACID [Concomitant]
     Route: 042

REACTIONS (2)
  - Multiple organ dysfunction syndrome [Unknown]
  - Sepsis [Unknown]

NARRATIVE: CASE EVENT DATE: 20180812
